FAERS Safety Report 5212671-0 (Version None)
Quarter: 2007Q1

REPORT INFORMATION
  Report Type: 
  Country: None (occurrence: None)
  Receive Date: 20070118
  Receipt Date: 20070108
  Transmission Date: 20070707
  Serious: Yes (Death, Other)
  Sender: FDA-Public Use
  Company Number: US-PFIZER INC-2005167684

PATIENT
  Sex: Male

DRUGS (7)
  1. CELEBREX [Suspect]
     Indication: ARTHRITIS
     Dates: start: 20030922, end: 20031103
  2. VIOXX [Suspect]
     Dates: start: 20030429, end: 20030101
  3. TERAZOSIN HCL [Concomitant]
  4. VIAGRA [Concomitant]
  5. PROPOXYPHENE HYDROCHLORIDE [Concomitant]
  6. METHYLPREDNISOLONE 16MG TAB [Concomitant]
  7. HYDROCODONE BITARTRATE + ACETAMINOPHEN [Concomitant]

REACTIONS (2)
  - BLADDER CANCER [None]
  - MYOCARDIAL INFARCTION [None]
